FAERS Safety Report 8698515 (Version 3)
Quarter: 2012Q4

REPORT INFORMATION
  Report Type: Report from Study
  Country: US (occurrence: US)
  Receive Date: 20120802
  Receipt Date: 20120828
  Transmission Date: 20130627
  Serious: Yes (Other)
  Sender: FDA-Public Use
  Company Number: US-ABBOTT-12P-163-0959918-00

PATIENT
  Age: 62 None
  Sex: Female

DRUGS (12)
  1. HUMIRA 40 MG/0.8 ML PEN [Suspect]
     Indication: CROHN^S DISEASE
     Dates: start: 2010
  2. LITHIUM [Suspect]
     Indication: PRODUCT USED FOR UNKNOWN INDICATION
  3. CLARITIN [Concomitant]
     Indication: HYPERSENSITIVITY
  4. OMEPRAZOLE [Concomitant]
     Indication: GASTROOESOPHAGEAL REFLUX DISEASE
  5. LOVASTATIN [Concomitant]
     Indication: BLOOD CHOLESTEROL INCREASED
     Dosage: 10 mg
  6. LAMOTRIGINE [Concomitant]
     Indication: BIPOLAR DISORDER
  7. BENICAR HCT [Concomitant]
     Indication: HYPERTENSION
     Dosage: 1 daily, not sure of dose
  8. GABAPENTIN [Concomitant]
     Indication: RESTLESS LEGS SYNDROME
     Dosage: Daily
  9. GABAPENTIN [Concomitant]
     Indication: DEPRESSION
  10. DEPLIN [Concomitant]
     Indication: DEPRESSION
  11. DEPLIN [Concomitant]
     Indication: BIPOLAR DISORDER
  12. PROZAC [Concomitant]
     Indication: DEPRESSION

REACTIONS (10)
  - Arthropathy [Not Recovered/Not Resolved]
  - Weight decreased [Unknown]
  - Gait disturbance [Unknown]
  - Toxicity to various agents [Unknown]
  - Fall [Unknown]
  - Pneumonia [Unknown]
  - Dyspnoea [Unknown]
  - Musculoskeletal chest pain [Unknown]
  - Cough [Unknown]
  - Arthropathy [Unknown]
